FAERS Safety Report 13651618 (Version 1)
Quarter: 2017Q2

REPORT INFORMATION
  Report Type: Spontaneous
  Country: ES (occurrence: ES)
  Receive Date: 20170614
  Receipt Date: 20170614
  Transmission Date: 20170830
  Serious: Yes (Other)
  Sender: FDA-Public Use
  Company Number: ES-EMD SERONO-E2B_80071504

PATIENT
  Age: 8 Year
  Sex: Male
  Weight: 23 kg

DRUGS (1)
  1. SAIZEN [Suspect]
     Active Substance: SOMATROPIN
     Indication: GROWTH RETARDATION
     Dosage: 5.83 MG/ML
     Route: 058
     Dates: start: 20161003, end: 20161105

REACTIONS (1)
  - Osteochondrosis [Recovering/Resolving]

NARRATIVE: CASE EVENT DATE: 20161102
